FAERS Safety Report 5732099-4 (Version None)
Quarter: 2008Q2

REPORT INFORMATION
  Report Type: 
  Country: None (occurrence: None)
  Receive Date: 20080506
  Receipt Date: 20080423
  Transmission Date: 20081010
  Serious: Yes (Other)
  Sender: FDA-Public Use
  Company Number: SPV1-2008-00909

PATIENT
  Age: 67 Year
  Sex: Female

DRUGS (2)
  1. ANAGRELIDE HYDROCHLORIDE [Suspect]
     Indication: ESSENTIAL THROMBOCYTHAEMIA
     Dosage: 0.5 MG, 2X/DAY:BID, ORAL
     Route: 048
     Dates: start: 20080228, end: 20080331
  2. ACTONEL [Concomitant]

REACTIONS (4)
  - BACK PAIN [None]
  - DIARRHOEA [None]
  - PARAESTHESIA [None]
  - VERTIGO [None]
